FAERS Safety Report 6349857-8 (Version None)
Quarter: 2009Q3

REPORT INFORMATION
  Report Type: 
  Country: None (occurrence: None)
  Receive Date: 20090911
  Receipt Date: 20090901
  Transmission Date: 20100115
  Serious: No
  Sender: FDA-Public Use
  Company Number: AU-ELI_LILLY_AND_COMPANY-AU200907003881

PATIENT
  Age: 60 Year
  Sex: Female

DRUGS (2)
  1. EVISTA [Suspect]
     Indication: OSTEOPOROSIS
     Dosage: 1 D/F, DAILY (1/D)
     Route: 048
     Dates: start: 20070101
  2. EVISTA [Suspect]
     Dosage: 1 D/F, DAILY (1/D)

REACTIONS (1)
  - FIBROADENOMA OF BREAST [None]
